FAERS Safety Report 12958427 (Version 1)
Quarter: 2016Q4

REPORT INFORMATION
  Report Type: Spontaneous
  Country: US (occurrence: US)
  Receive Date: 20161121
  Receipt Date: 20161121
  Transmission Date: 20170207
  Serious: No
  Sender: FDA-Public Use
  Company Number: US-AUROBINDO-AUR-APU-2014-11172

PATIENT
  Sex: Male

DRUGS (1)
  1. PANTOPRAZOLE SODIUM. [Suspect]
     Active Substance: PANTOPRAZOLE SODIUM
     Indication: GASTRITIS EROSIVE
     Dosage: TWO TIMES A DAY EMPTY STOMACH
     Route: 065

REACTIONS (2)
  - Liver disorder [Not Recovered/Not Resolved]
  - Gastric disorder [Not Recovered/Not Resolved]
